FAERS Safety Report 14260283 (Version 2)
Quarter: 2017Q4

REPORT INFORMATION
  Report Type: Spontaneous
  Country: GB (occurrence: GB)
  Receive Date: 20171207
  Receipt Date: 20171226
  Transmission Date: 20180321
  Serious: Yes (Death, Hospitalization)
  Sender: FDA-Public Use
  Company Number: GB-SA-2017SA240146

PATIENT
  Age: 42 Year
  Sex: Female

DRUGS (2)
  1. METHYLPREDNISOLONE. [Concomitant]
     Active Substance: METHYLPREDNISOLONE
     Route: 065
     Dates: start: 201608, end: 201608
  2. ALEMTUZUMAB [Suspect]
     Active Substance: ALEMTUZUMAB
     Indication: RELAPSING-REMITTING MULTIPLE SCLEROSIS
     Route: 041
     Dates: start: 201608, end: 201608

REACTIONS (10)
  - Listeria encephalitis [Fatal]
  - Vomiting [Fatal]
  - Coma [Unknown]
  - Diarrhoea [Fatal]
  - Pyrexia [Fatal]
  - Meningoencephalitis bacterial [Fatal]
  - Malaise [Fatal]
  - Tachycardia [Fatal]
  - Hypertension [Fatal]
  - Tachypnoea [Fatal]

NARRATIVE: CASE EVENT DATE: 2016
